FAERS Safety Report 12328508 (Version 1)
Quarter: 2016Q2

REPORT INFORMATION
  Report Type: Spontaneous
  Country: US (occurrence: US)
  Receive Date: 20160503
  Receipt Date: 20160503
  Transmission Date: 20160815
  Serious: No
  Sender: FDA-Public Use
  Company Number: US-BEH-2015048760

PATIENT
  Sex: Female
  Weight: 52 kg

DRUGS (51)
  1. ACETAMINOPHEN. [Concomitant]
     Active Substance: ACETAMINOPHEN
  2. PREDNISONE. [Concomitant]
     Active Substance: PREDNISONE
  3. ONDANSETRON [Concomitant]
     Active Substance: ONDANSETRON
  4. BIOTIN [Concomitant]
     Active Substance: BIOTIN
  5. MULTIVITAMIN [Concomitant]
     Active Substance: VITAMINS
  6. HIZENTRA [Suspect]
     Active Substance: HUMAN IMMUNOGLOBULIN G
     Indication: HYPOGAMMAGLOBULINAEMIA
     Dosage: 4 GM 20 ML VIAL; 28 GM EVERY 2 WEEKS
     Route: 058
  7. PANTOPRAZOLE [Concomitant]
     Active Substance: PANTOPRAZOLE SODIUM
  8. FERROUS SULFATE. [Concomitant]
     Active Substance: FERROUS SULFATE
  9. SPORANOX [Concomitant]
     Active Substance: ITRACONAZOLE
  10. PAXIL [Concomitant]
     Active Substance: PAROXETINE HYDROCHLORIDE
  11. BENICAR [Concomitant]
     Active Substance: OLMESARTAN MEDOXOMIL
  12. LYRICA [Concomitant]
     Active Substance: PREGABALIN
  13. ALLEGRA [Concomitant]
     Active Substance: FEXOFENADINE HYDROCHLORIDE
  14. LMX [Concomitant]
     Active Substance: LIDOCAINE
  15. CIPRO [Concomitant]
     Active Substance: CIPROFLOXACIN HYDROCHLORIDE
  16. XANAX [Concomitant]
     Active Substance: ALPRAZOLAM
  17. SYNTHROID [Concomitant]
     Active Substance: LEVOTHYROXINE SODIUM
  18. PROGRAF [Concomitant]
     Active Substance: TACROLIMUS\TACROLIMUS ANHYDROUS
  19. CALCIUM [Concomitant]
     Active Substance: CALCIUM
  20. DAPSONE. [Concomitant]
     Active Substance: DAPSONE
  21. KLORCON [Concomitant]
  22. SINGULAIR [Concomitant]
     Active Substance: MONTELUKAST SODIUM
  23. PATANOL [Concomitant]
     Active Substance: OLOPATADINE HYDROCHLORIDE
  24. NOVOLOG [Concomitant]
     Active Substance: INSULIN ASPART
  25. CEPHALEXIN. [Concomitant]
     Active Substance: CEPHALEXIN
  26. LIPITOR [Concomitant]
     Active Substance: ATORVASTATIN CALCIUM
  27. EPLERENONE. [Concomitant]
     Active Substance: EPLERENONE
  28. NASONEX [Concomitant]
     Active Substance: MOMETASONE FUROATE
  29. ADVAIR HFA [Concomitant]
     Active Substance: FLUTICASONE PROPIONATE\SALMETEROL XINAFOATE
  30. LOMOTIL [Concomitant]
     Active Substance: ATROPINE SULFATE\DIPHENOXYLATE HYDROCHLORIDE
  31. XYZAL [Concomitant]
     Active Substance: LEVOCETIRIZINE DIHYDROCHLORIDE
  32. WELCHOL [Concomitant]
     Active Substance: COLESEVELAM HYDROCHLORIDE
  33. REGLAN [Concomitant]
     Active Substance: METOCLOPRAMIDE HYDROCHLORIDE
  34. DIPHENHYDRAMINE. [Concomitant]
     Active Substance: DIPHENHYDRAMINE
  35. WELLBUTRIN [Concomitant]
     Active Substance: BUPROPION HYDROCHLORIDE
  36. IPRATROPIUM [Concomitant]
     Active Substance: IPRATROPIUM
  37. VITAMIN C [Concomitant]
     Active Substance: ASCORBIC ACID
  38. PROBIOTIC [Concomitant]
     Active Substance: PROBIOTICS NOS
  39. NEXIUM [Concomitant]
     Active Substance: ESOMEPRAZOLE MAGNESIUM
  40. HYDROCHLOROTHIAZIDE. [Concomitant]
     Active Substance: HYDROCHLOROTHIAZIDE
  41. SPIRIVA [Concomitant]
     Active Substance: TIOTROPIUM BROMIDE MONOHYDRATE
  42. K DUR [Concomitant]
  43. VALCYTE [Concomitant]
     Active Substance: VALGANCICLOVIR HYDROCHLORIDE
  44. ALENDRONATE [Concomitant]
     Active Substance: ALENDRONATE SODIUM
  45. HIZENTRA [Suspect]
     Active Substance: HUMAN IMMUNOGLOBULIN G
     Indication: HYPOGAMMAGLOBULINAEMIA
     Dosage: 10 GM 50 ML VIAL; 28 GM EVERY 2 WEEKS
     Route: 058
  46. EPIPEN [Concomitant]
     Active Substance: EPINEPHRINE
  47. HUMALOG [Concomitant]
     Active Substance: INSULIN LISPRO
  48. LANTUS [Concomitant]
     Active Substance: INSULIN GLARGINE
  49. LIDOCAINE. [Concomitant]
     Active Substance: LIDOCAINE
  50. ERGOCALCIFEROL. [Concomitant]
     Active Substance: ERGOCALCIFEROL
  51. XOPENEX [Concomitant]
     Active Substance: LEVALBUTEROL HYDROCHLORIDE

REACTIONS (1)
  - Rash [Unknown]
